FAERS Safety Report 4568898-4 (Version None)
Quarter: 2005Q1

REPORT INFORMATION
  Report Type: 
  Country: None (occurrence: None)
  Receive Date: 20050203
  Receipt Date: 20050121
  Transmission Date: 20050727
  Serious: Yes (Death, Hospitalization)
  Sender: FDA-Public Use
  Company Number: US-JNJFOC-20040901666

PATIENT
  Sex: Female
  Weight: 73.94 kg

DRUGS (41)
  1. REMICADE [Suspect]
     Dosage: EVERY 3-5 WEEKS
     Route: 042
  2. REMICADE [Suspect]
     Indication: RHEUMATOID ARTHRITIS
     Route: 042
  3. NEURONTIN [Concomitant]
  4. NEURONTIN [Concomitant]
     Dosage: 4 TABLETS
  5. VEETIDS [Concomitant]
  6. PAXIL [Concomitant]
  7. PAXIL [Concomitant]
  8. TRIMOX [Concomitant]
  9. TRIMOX [Concomitant]
  10. DIPHENHYDRAMINE HCL [Concomitant]
  11. TEMAZEPAM [Concomitant]
  12. AUGMENTIN [Concomitant]
  13. AUGMENTIN [Concomitant]
  14. SKELAXIN [Concomitant]
  15. CLIDINIUM [Concomitant]
  16. AMBIEN [Concomitant]
  17. FAMVIR [Concomitant]
  18. WELLBUTRIN [Concomitant]
  19. OXYCODON [Concomitant]
     Dosage: AS NEEDED
  20. OXYCODON [Concomitant]
  21. ENTEX LA [Concomitant]
  22. ENTEX LA [Concomitant]
  23. PREVACID [Concomitant]
  24. TRAZADONE [Concomitant]
  25. ALPRAZOLAM [Concomitant]
  26. BEXTRA [Concomitant]
  27. COMBIVENT [Concomitant]
  28. COMBIVENT [Concomitant]
     Dosage: 2 PUFFS
  29. PREDNISONE [Concomitant]
  30. MULTI-VITAMINS [Concomitant]
  31. MULTI-VITAMINS [Concomitant]
  32. MULTI-VITAMINS [Concomitant]
  33. MULTI-VITAMINS [Concomitant]
  34. MULTI-VITAMINS [Concomitant]
  35. MULTI-VITAMINS [Concomitant]
  36. MULTI-VITAMINS [Concomitant]
  37. MULTI-VITAMINS [Concomitant]
  38. VITAMIN E [Concomitant]
     Dosage: WITH B-6, B-12 AND FOLIC ACID
  39. GLUCOSAMINE [Concomitant]
     Dosage: CHONDROITIN MSM
  40. SENOKOT [Concomitant]
  41. METHOTREXATE [Concomitant]

REACTIONS (7)
  - HERPES ZOSTER [None]
  - INTERSTITIAL LUNG DISEASE [None]
  - LUNG NEOPLASM MALIGNANT [None]
  - MALIGNANT PLEURAL EFFUSION [None]
  - PNEUMONIA [None]
  - RESPIRATORY FAILURE [None]
  - SINUS BRADYCARDIA [None]
